FAERS Safety Report 23056744 (Version 1)
Quarter: 2023Q4

REPORT INFORMATION
  Report Type: Spontaneous
  Country: LK (occurrence: None)
  Receive Date: 20231012
  Receipt Date: 20231012
  Transmission Date: 20240110
  Serious: Yes (Other)
  Sender: FDA-Public Use
  Company Number: LK-MAIA Pharmaceuticals, Inc.-MAI202310-000055

PATIENT
  Age: 50 Year
  Sex: Male

DRUGS (1)
  1. BACLOFEN [Suspect]
     Active Substance: BACLOFEN
     Indication: Neck pain
     Dosage: 10 MG
     Route: 065

REACTIONS (2)
  - Myoclonus [Recovered/Resolved]
  - Product use in unapproved indication [Unknown]
